FAERS Safety Report 9695651 (Version 1)
Quarter: 2013Q4

REPORT INFORMATION
  Report Type: Spontaneous
  Country: US (occurrence: None)
  Receive Date: 20131118
  Receipt Date: 20131118
  Transmission Date: 20140711
  Serious: Yes (Other)
  Sender: FDA-Public Use
  Company Number: None

PATIENT
  Age: 37 Year
  Sex: Female
  Weight: 83.92 kg

DRUGS (1)
  1. CYMBALTA [Suspect]
     Indication: PAIN
     Dosage: 1 CAP?ONCE DAILY?TAKEN BY MOUTH
     Route: 048
     Dates: start: 20131023, end: 20131114

REACTIONS (4)
  - Abnormal dreams [None]
  - Disturbance in attention [None]
  - Mood altered [None]
  - Emotional disorder [None]
